FAERS Safety Report 7536170-6 (Version None)
Quarter: 2011Q2

REPORT INFORMATION
  Report Type: 
  Country: None (occurrence: None)
  Receive Date: 20110602
  Receipt Date: 20110520
  Transmission Date: 20111010
  Serious: Yes (Hospitalization, Other)
  Sender: FDA-Public Use
  Company Number: 2011P1006692

PATIENT
  Age: 34 Year
  Sex: Male
  Weight: 80.831 kg

DRUGS (6)
  1. AUGMENTIN '875' [Suspect]
     Indication: LUNG INFECTION
     Dosage: PO
     Route: 048
     Dates: start: 20110220, end: 20110224
  2. ARIXTRA [Concomitant]
  3. ANTALGIC [Concomitant]
  4. DARAPRIM [Suspect]
     Indication: CEREBRAL TOXOPLASMOSIS
     Dosage: PO, 100 MG; 50 MG
     Route: 048
     Dates: start: 20110216
  5. IMIPENEM AND CILASTATIN SODIUM [Suspect]
     Indication: LUNG INFECTION
     Dosage: PO
     Route: 048
     Dates: start: 20110226, end: 20110303
  6. SULFADIAZINE [Suspect]
     Indication: CEREBRAL TOXOPLASMOSIS
     Dosage: 2 TABLETS; QD; PO
     Route: 048
     Dates: start: 20110216, end: 20110228

REACTIONS (10)
  - HEPATOCELLULAR INJURY [None]
  - PLEURAL EFFUSION [None]
  - PULMONARY INFARCTION [None]
  - PAIN [None]
  - HEPATITIS [None]
  - PYREXIA [None]
  - CYTOLYTIC HEPATITIS [None]
  - PULMONARY EMBOLISM [None]
  - PNEUMONIA KLEBSIELLA [None]
  - PROTHROMBIN LEVEL DECREASED [None]
